FAERS Safety Report 11457000 (Version 1)
Quarter: 2015Q3

REPORT INFORMATION
  Report Type: Spontaneous
  Country: AU (occurrence: AU)
  Receive Date: 20150904
  Receipt Date: 20150904
  Transmission Date: 20151125
  Serious: Yes (Other)
  Sender: FDA-Public Use
  Company Number: AU-CIPLA LTD.-2015AU07114

PATIENT

DRUGS (2)
  1. BEVACIZUMAB [Suspect]
     Active Substance: BEVACIZUMAB
     Indication: OPTIC GLIOMA
     Dosage: 10 MG/KG, EVERY 2 WEEKS FOR 10 AND 3 MONTHS
     Route: 042
  2. IRINOTECAN [Suspect]
     Active Substance: IRINOTECAN
     Indication: OPTIC GLIOMA
     Dosage: 125 TO 150 MG/M2 EVERY 2 WEEKS FOR 10 AND 3 MONTHS
     Route: 042

REACTIONS (3)
  - Metastatic neoplasm [Unknown]
  - Treatment failure [Unknown]
  - Disease progression [Unknown]
